FAERS Safety Report 5011976-6 (Version None)
Quarter: 2006Q2

REPORT INFORMATION
  Report Type: 
  Country: None (occurrence: None)
  Receive Date: 20060526
  Receipt Date: 20060517
  Transmission Date: 20061013
  Serious: Yes (Other)
  Sender: FDA-Public Use
  Company Number: US-JNJFOC-20060504300

PATIENT
  Sex: Female
  Weight: 62.6 kg

DRUGS (3)
  1. REMICADE [Suspect]
     Indication: SCLERODERMA
     Route: 042
  2. CODEINE [Concomitant]
     Indication: PAIN
  3. OXYCONTIN [Concomitant]
     Indication: PAIN

REACTIONS (3)
  - AMNESIA [None]
  - COUGH [None]
  - PHARYNGOLARYNGEAL PAIN [None]
